FAERS Safety Report 19073443 (Version 1)
Quarter: 2021Q1

REPORT INFORMATION
  Report Type: Spontaneous
  Country: US (occurrence: US)
  Receive Date: 20210330
  Receipt Date: 20210330
  Transmission Date: 20210420
  Serious: Yes (Other)
  Sender: FDA-Public Use
  Company Number: US-GLAXOSMITHKLINE-USCH2021014638

PATIENT
  Age: 62 Year
  Sex: Female

DRUGS (3)
  1. CENTRUM SPECIALIST ENERGY [Suspect]
     Active Substance: VITAMINS
     Indication: VITAMIN SUPPLEMENTATION
  2. EMERGEN?C [Suspect]
     Active Substance: VITAMINS
     Indication: PRODUCT USED FOR UNKNOWN INDICATION
  3. CENTRUM SPECIALIST HEART [Concomitant]
     Active Substance: MINERALS\PHYTOSTEROLS\VITAMINS
     Indication: VITAMIN SUPPLEMENTATION

REACTIONS (4)
  - Anaphylactic shock [Recovered/Resolved]
  - Nervousness [Unknown]
  - Hypersensitivity [Unknown]
  - Hyperhidrosis [Unknown]
